FAERS Safety Report 5962545-2 (Version None)
Quarter: 2008Q4

REPORT INFORMATION
  Report Type: 
  Country: None (occurrence: None)
  Receive Date: 20081121
  Receipt Date: 20081117
  Transmission Date: 20090506
  Serious: Yes (Death, Hospitalization, Other)
  Sender: FDA-Public Use
  Company Number: PHHY2008FR26472

PATIENT
  Age: 61 Year
  Sex: Female
  Weight: 70 kg

DRUGS (7)
  1. EXJADE [Suspect]
     Indication: IRON OVERLOAD
     Dosage: 1400 MG, QD
     Route: 048
     Dates: start: 20070924, end: 20071205
  2. EXJADE [Suspect]
     Dosage: 1000 MG, QD
     Route: 048
     Dates: start: 20080129
  3. EXJADE [Suspect]
     Dosage: UNK
     Dates: start: 20080101
  4. ARANESP [Concomitant]
     Dosage: 300 UG/WEEK
     Route: 058
     Dates: start: 20080706
  5. THALIDOMIDE [Concomitant]
     Dosage: 200 MG/DAY
     Dates: start: 20080101, end: 20080601
  6. PLATELETS [Concomitant]
  7. RITUXIMAB [Concomitant]
     Route: 042

REACTIONS (4)
  - COUGH [None]
  - DIARRHOEA [None]
  - GASTROINTESTINAL HAEMORRHAGE [None]
  - PLATELET COUNT DECREASED [None]
